FAERS Safety Report 14371359 (Version 1)
Quarter: 2018Q1

REPORT INFORMATION
  Report Type: Spontaneous
  Country: US (occurrence: US)
  Receive Date: 20180109
  Receipt Date: 20180109
  Transmission Date: 20180509
  Serious: Yes (Hospitalization)
  Sender: FDA-Public Use
  Company Number: None

PATIENT
  Age: 69 Year
  Sex: Male

DRUGS (2)
  1. APIXABAN [Suspect]
     Active Substance: APIXABAN
     Indication: DEEP VEIN THROMBOSIS
     Route: 048
     Dates: start: 20170428
  2. ASPIRIN. [Suspect]
     Active Substance: ASPIRIN
     Route: 048
     Dates: end: 20161030

REACTIONS (7)
  - Alcohol use [None]
  - Deep vein thrombosis [None]
  - Treatment noncompliance [None]
  - Upper gastrointestinal haemorrhage [None]
  - Gastric ulcer [None]
  - Haemoglobin decreased [None]
  - Occult blood positive [None]

NARRATIVE: CASE EVENT DATE: 20171029
